FAERS Safety Report 5832496-2 (Version None)
Quarter: 2008Q3

REPORT INFORMATION
  Report Type: 
  Country: None (occurrence: None)
  Receive Date: 20080804
  Receipt Date: 20080708
  Transmission Date: 20090109
  Serious: No
  Sender: FDA-Public Use
  Company Number: US-JNJFOC-20080601616

PATIENT
  Sex: Female
  Weight: 63.5 kg

DRUGS (4)
  1. INVEGA [Suspect]
     Route: 048
  2. INVEGA [Suspect]
     Indication: SCHIZOPHRENIA
     Dosage: 6 MG AM, 9 MG PM
     Route: 048
  3. ZYPREXA [Concomitant]
     Route: 048
  4. ZYPREXA [Concomitant]
     Indication: SCHIZOPHRENIA
     Route: 048

REACTIONS (6)
  - CHEST DISCOMFORT [None]
  - INSOMNIA [None]
  - MOOD SWINGS [None]
  - PARAESTHESIA [None]
  - TREMOR [None]
  - WEIGHT INCREASED [None]
